FAERS Safety Report 16438622 (Version 1)
Quarter: 2019Q2

REPORT INFORMATION
  Report Type: Spontaneous
  Country: FR (occurrence: FR)
  Receive Date: 20190617
  Receipt Date: 20190617
  Transmission Date: 20190711
  Serious: Yes (Hospitalization)
  Sender: FDA-Public Use
  Company Number: FR-ACCORD-132729

PATIENT
  Age: 64 Year
  Sex: Male
  Weight: 72.3 kg

DRUGS (10)
  1. GAVISCON [Concomitant]
     Active Substance: ALUMINUM HYDROXIDE\MAGNESIUM CARBONATE
  2. BROMAZEPAM [Concomitant]
     Active Substance: BROMAZEPAM
  3. CIPROFLOXACIN/CIPROFLOXACIN HYDROCHLORIDE/CIPROFLOXACIN LACTATE [Suspect]
     Active Substance: CIPROFLOXACIN
     Indication: SERRATIA SEPSIS
     Route: 048
     Dates: start: 20190222, end: 20190304
  4. AMIKACIN MYLAN [Suspect]
     Active Substance: AMIKACIN
     Indication: SERRATIA SEPSIS
     Dosage: STRENGTH: 250 MG
     Route: 042
     Dates: start: 20190222, end: 20190304
  5. ACIDE FOLIQUE [Concomitant]
     Active Substance: FOLIC ACID
  6. BLEOMYCIN [Interacting]
     Active Substance: BLEOMYCIN SULFATE
     Indication: PROSTATE CANCER
     Dosage: STRENGTH: 15 MG
     Route: 042
     Dates: start: 20190211, end: 20190225
  7. CISPLATIN ACCORD [Suspect]
     Active Substance: CISPLATIN
     Indication: PROSTATE CANCER
     Route: 042
     Dates: start: 20190211, end: 20190215
  8. ZARZIO [Interacting]
     Active Substance: FILGRASTIM
     Indication: NEUTROPENIA
     Route: 058
     Dates: start: 20190223, end: 20190226
  9. ETOPOSIDE MYLAN [Suspect]
     Active Substance: ETOPOSIDE
     Indication: PROSTATE CANCER
     Dosage: LAST DATE OF ADMINISTRATION 15-FEB-2019
     Route: 042
     Dates: start: 20190211
  10. ZYMAD [Concomitant]
     Active Substance: CHOLECALCIFEROL

REACTIONS (3)
  - Lung disorder [Not Recovered/Not Resolved]
  - Drug interaction [Unknown]
  - Off label use [Unknown]

NARRATIVE: CASE EVENT DATE: 20190304
